FAERS Safety Report 6212814-6 (Version None)
Quarter: 2009Q2

REPORT INFORMATION
  Report Type: 
  Country: None (occurrence: None)
  Receive Date: 20090602
  Receipt Date: 20090602
  Transmission Date: 20091009
  Serious: Yes (Death)
  Sender: FDA-Public Use
  Company Number: None

PATIENT
  Age: 52 Year
  Sex: Male
  Weight: 181.4 kg

DRUGS (15)
  1. FENTANYL TRANSDERMAL SYSTEM [Suspect]
     Indication: BACK PAIN
     Dosage: 100MCG PATCH
     Dates: start: 20090218, end: 20090221
  2. TRAMADOL HCL [Concomitant]
  3. LASIX [Concomitant]
  4. JANUVIA [Concomitant]
  5. LYRICA [Concomitant]
  6. LIPITOR [Concomitant]
  7. PRED FORTE [Concomitant]
  8. IRON [Concomitant]
  9. KETURA [Concomitant]
  10. COREG CR [Concomitant]
  11. BENECAR [Concomitant]
  12. LEVAMIR [Concomitant]
  13. NEXIUM [Concomitant]
  14. OPAVA [Concomitant]
  15. ANTIHISTAMINE [Concomitant]

REACTIONS (3)
  - DEVICE LEAKAGE [None]
  - PRODUCT QUALITY ISSUE [None]
  - UNRESPONSIVE TO STIMULI [None]
